FAERS Safety Report 5029423-7 (Version None)
Quarter: 2006Q2

REPORT INFORMATION
  Report Type: 
  Country: None (occurrence: None)
  Receive Date: 20060613
  Receipt Date: 20060605
  Transmission Date: 20061013
  Serious: Yes (Other)
  Sender: FDA-Public Use
  Company Number: 2006065424

PATIENT
  Age: 64 Year
  Sex: Male

DRUGS (8)
  1. ATARAX [Suspect]
     Indication: ILL-DEFINED DISORDER
     Dosage: 25 MG (25 MG, 1 IN 1 D), ORAL
     Route: 048
  2. ALL OTHER THERAPEUTIC PRODUCTS (ALL OTHER THERAPEUTIC PRODUCTS) [Concomitant]
  3. BLOPRESS (CANDESARTAN CILEXETIL) [Concomitant]
  4. NORVASC [Concomitant]
  5. LIPIDIL [Concomitant]
  6. POTASSIUM CITRATE/SODIUM CITRATE (POTASSIUM CITRATE, SODIUM CITRATE) [Concomitant]
  7. CIRCANETTEN (BIOFLAVONOIDS, POTASSIUM BITRATRATE, SENNA, SULFUR) [Concomitant]
  8. SOLDOL E (SENNOSIDE A+B) [Concomitant]

REACTIONS (2)
  - NAIL DISCOLOURATION [None]
  - TOXIC SKIN ERUPTION [None]
